FAERS Safety Report 25151473 (Version 1)
Quarter: 2025Q2

REPORT INFORMATION
  Report Type: Spontaneous
  Country: US (occurrence: US)
  Receive Date: 20250402
  Receipt Date: 20250402
  Transmission Date: 20250717
  Serious: Yes (Death, Life-Threatening, Hospitalization, Other)
  Sender: AMGEN
  Company Number: US-AMGEN-USASP2025061233

PATIENT
  Age: 48 Year
  Sex: Male

DRUGS (1)
  1. PREDNISONE [Suspect]
     Active Substance: PREDNISONE
     Indication: POEMS syndrome
     Route: 065

REACTIONS (8)
  - Cardiac arrest [Fatal]
  - Respiratory arrest [Unknown]
  - Multiple organ dysfunction syndrome [Unknown]
  - Pneumonia [Unknown]
  - Respiratory failure [Unknown]
  - Renal impairment [Unknown]
  - Neuropathy peripheral [Unknown]
  - Off label use [Unknown]
